FAERS Safety Report 16068360 (Version 1)
Quarter: 2019Q1

REPORT INFORMATION
  Report Type: Spontaneous
  Country: AT (occurrence: AT)
  Receive Date: 20190313
  Receipt Date: 20190313
  Transmission Date: 20190418
  Serious: Yes (Other)
  Sender: FDA-Public Use
  Company Number: AT-ALLERGAN-1910709US

PATIENT
  Sex: Male
  Weight: 200 kg

DRUGS (2)
  1. CEFTAZIDIME;AVIBACTAM - BP [Suspect]
     Active Substance: AVIBACTAM SODIUM\CEFTAZIDIME
     Indication: ACINETOBACTER INFECTION
     Dosage: 10 G, Q4HR
     Route: 065
     Dates: start: 20181024, end: 20181030
  2. AZACTAM [Suspect]
     Active Substance: AZTREONAM
     Indication: ACINETOBACTER INFECTION
     Dosage: 8 G, Q4HR
     Route: 065
     Dates: start: 20181024, end: 20181030

REACTIONS (4)
  - Drug ineffective [Unknown]
  - Product use issue [Unknown]
  - Condition aggravated [Unknown]
  - Overdose [Unknown]
